FAERS Safety Report 24538864 (Version 1)
Quarter: 2024Q4

REPORT INFORMATION
  Report Type: Spontaneous
  Country: SE (occurrence: SE)
  Receive Date: 20241023
  Receipt Date: 20241023
  Transmission Date: 20250115
  Serious: Yes (Other)
  Sender: TEVA
  Company Number: SE-TEVA-VS-3255962

PATIENT
  Age: 57 Year
  Sex: Female

DRUGS (1)
  1. PREDNISOLONE [Suspect]
     Active Substance: PREDNISOLONE
     Indication: Colitis ulcerative
     Dosage: ACTAVIS
     Route: 065

REACTIONS (1)
  - Adrenal insufficiency [Unknown]
